FAERS Safety Report 9202257 (Version 1)
Quarter: 2013Q1

REPORT INFORMATION
  Report Type: Spontaneous
  Country: US (occurrence: None)
  Receive Date: 20130326
  Receipt Date: 20130326
  Transmission Date: 20140127
  Serious: Yes (Other)
  Sender: FDA-Public Use
  Company Number: 2013-04467

PATIENT
  Age: 28 Year
  Sex: Female
  Weight: 91 kg

DRUGS (1)
  1. MICONAZOLE NITRATE [Suspect]
     Indication: PRODUCT USED FOR UNKNOWN INDICATION
     Route: 067
     Dates: start: 20130312, end: 20130312

REACTIONS (3)
  - Hypersensitivity [None]
  - Vulvovaginal pruritus [None]
  - Vulvovaginal discomfort [None]
